FAERS Safety Report 18813288 (Version 1)
Quarter: 2021Q1

REPORT INFORMATION
  Report Type: Spontaneous
  Country: IL (occurrence: IL)
  Receive Date: 20210131
  Receipt Date: 20210131
  Transmission Date: 20210419
  Serious: Yes (Hospitalization)
  Sender: FDA-Public Use
  Company Number: IL-JNJFOC-20210144641

PATIENT
  Age: 84 Year
  Sex: Male
  Weight: 80 kg

DRUGS (1)
  1. XARELTO [Suspect]
     Active Substance: RIVAROXABAN
     Indication: ATRIAL FIBRILLATION
     Dosage: 15 MG, QD
     Route: 048

REACTIONS (4)
  - Product use issue [Unknown]
  - Product prescribing issue [Unknown]
  - Cerebral haemorrhage [Recovering/Resolving]
  - Paralysis [Recovering/Resolving]

NARRATIVE: CASE EVENT DATE: 202101
